FAERS Safety Report 12147338 (Version 2)
Quarter: 2016Q1

REPORT INFORMATION
  Report Type: Spontaneous
  Country: IL (occurrence: IL)
  Receive Date: 20160304
  Receipt Date: 20160325
  Transmission Date: 20160526
  Serious: Yes (Death)
  Sender: FDA-Public Use
  Company Number: US-ASTRAZENECA-2016SE23225

PATIENT
  Age: 157 Day
  Sex: Female

DRUGS (9)
  1. SYNAGIS [Suspect]
     Active Substance: PALIVIZUMAB
     Indication: ANTIVIRAL PROPHYLAXIS
     Route: 030
     Dates: start: 20151210, end: 20160121
  2. HAEMOPHILUS INFLUENZAE TYPE B [Suspect]
     Active Substance: HAEMOPHILUS INFLUENZAE TYPE B
     Route: 065
     Dates: start: 20160217, end: 20160217
  3. DIPHTHERIA TOXOID NOS [Suspect]
     Active Substance: CORYNEBACTERIUM DIPHTHERIAE TOXOID ANTIGEN (FORMALDEHYDE INACTIVATED)
     Route: 065
  4. POLIOMYELITIS VACCINE NOS [Suspect]
     Active Substance: POLIOMYELITIS VACCINE
     Route: 065
     Dates: start: 20160217, end: 20160217
  5. HAEMOPHILUS INFLUENZAE [Suspect]
     Active Substance: HAEMOPHILUS INFLUENZAE TYPE B
     Dosage: FIRST DOSE
     Route: 065
  6. TETANUS VACCINE [Suspect]
     Active Substance: CLOSTRIDIUM TETANI TOXOID ANTIGEN (FORMALDEHYDE INACTIVATED)
     Route: 065
     Dates: start: 20160217, end: 20160217
  7. POLIOMYELITIS VACCINE NOS [Suspect]
     Active Substance: POLIOMYELITIS VACCINE
     Dosage: FIRST DOSE
     Route: 065
  8. TETANUS VACCINE [Suspect]
     Active Substance: CLOSTRIDIUM TETANI TOXOID ANTIGEN (FORMALDEHYDE INACTIVATED)
     Dosage: FIRST DOSE
     Route: 065
  9. DIPHTHERIA TOXOID NOS [Suspect]
     Active Substance: CORYNEBACTERIUM DIPHTHERIAE TOXOID ANTIGEN (FORMALDEHYDE INACTIVATED)
     Route: 065
     Dates: start: 20160217, end: 20160217

REACTIONS (2)
  - Pyrexia [Fatal]
  - Adenovirus infection [Fatal]

NARRATIVE: CASE EVENT DATE: 20160217
